FAERS Safety Report 10549152 (Version 3)
Quarter: 2015Q2

REPORT INFORMATION
  Report Type: Spontaneous
  Country: US (occurrence: US)
  Receive Date: 20141028
  Receipt Date: 20150415
  Transmission Date: 20150821
  Serious: Yes (Hospitalization)
  Sender: FDA-Public Use
  Company Number: US-BAYER-2014-158578

PATIENT
  Age: 34 Year
  Sex: Female
  Weight: 104.31 kg

DRUGS (5)
  1. PROTONIX [Concomitant]
     Active Substance: PANTOPRAZOLE SODIUM
     Dosage: 40 MG, QD
     Route: 048
  2. CYMBALTA [Concomitant]
     Active Substance: DULOXETINE HYDROCHLORIDE
     Dosage: 60 MG, QD
     Route: 048
  3. MIRENA [Suspect]
     Active Substance: LEVONORGESTREL
     Indication: CONTRACEPTION
     Dosage: 20 MCG/24HR, CONT
     Route: 015
     Dates: start: 20060802, end: 20070723
  4. LEVOTHYROXINE [Concomitant]
     Active Substance: LEVOTHYROXINE
     Indication: HYPOTHYROIDISM
     Dosage: UNK
     Route: 048
     Dates: start: 2001
  5. PRISTIQ EXTENDED RELEASE [Concomitant]
     Active Substance: DESVENLAFAXINE SUCCINATE
     Indication: DEPRESSION
     Dosage: UNK
     Route: 048
     Dates: start: 2004

REACTIONS (14)
  - Infection [None]
  - Cyst [None]
  - Emotional distress [None]
  - Vaginal haemorrhage [None]
  - Depression [None]
  - Anxiety [None]
  - Uterine perforation [None]
  - Injury [None]
  - Stress [None]
  - Uterine scar [None]
  - Fear [None]
  - Hysterectomy [None]
  - Abdominal pain [None]
  - Device issue [None]

NARRATIVE: CASE EVENT DATE: 20060818
